FAERS Safety Report 6770504-5 (Version None)
Quarter: 2010Q2

REPORT INFORMATION
  Report Type: 
  Country: None (occurrence: None)
  Receive Date: 20100615
  Receipt Date: 20100614
  Transmission Date: 20101027
  Serious: Yes (Other)
  Sender: FDA-Public Use
  Company Number: CH-WYE-G04942209

PATIENT
  Age: 28 Year
  Sex: Female

DRUGS (5)
  1. EFFEXOR XR [Suspect]
     Indication: DEPRESSION
     Route: 048
     Dates: start: 20080524
  2. ANXIOLIT [Concomitant]
     Indication: SLEEP DISORDER
     Route: 048
     Dates: start: 20080101
  3. ZOLPIDEM [Concomitant]
     Route: 048
     Dates: start: 20080101
  4. RITALIN [Concomitant]
     Indication: ATYPICAL ATTENTION DEFICIT SYNDROME
     Route: 048
     Dates: start: 20080101
  5. METHADONE [Suspect]
     Indication: POLYSUBSTANCE DEPENDENCE
     Route: 048
     Dates: start: 20060405

REACTIONS (3)
  - ABORTION MISSED [None]
  - DRUG EXPOSURE DURING PREGNANCY [None]
  - FOETAL TOBACCO EXPOSURE [None]
